FAERS Safety Report 12495597 (Version 2)
Quarter: 2017Q1

REPORT INFORMATION
  Report Type: Spontaneous
  Country: DE (occurrence: DE)
  Receive Date: 20160624
  Receipt Date: 20170109
  Transmission Date: 20170428
  Serious: Yes (Other)
  Sender: FDA-Public Use
  Company Number: DE-CIPLA LTD.-2016DE08110

PATIENT

DRUGS (6)
  1. KREON [Concomitant]
     Active Substance: PANCRELIPASE
     Dosage: 3 * 25000 IU / TG.
     Route: 065
     Dates: start: 201405
  2. NOVALGIN [Concomitant]
     Active Substance: METAMIZOLE SODIUM
     Dosage: 30 TRPF. UPON NEED
     Route: 048
     Dates: start: 201405
  3. EPIRUBICIN [Suspect]
     Active Substance: EPIRUBICIN
     Indication: ADENOCARCINOMA GASTRIC
     Dosage: 77.50 MG, UNK
     Route: 042
     Dates: start: 20140611, end: 20140611
  4. CISPLATIN. [Suspect]
     Active Substance: CISPLATIN
     Indication: ADENOCARCINOMA GASTRIC
     Dosage: 93.00 MG, UNK
     Route: 042
     Dates: start: 20140611, end: 20140611
  5. XELODA [Concomitant]
     Active Substance: CAPECITABINE
     Dosage: UNK
     Route: 065
  6. CAPECITABINE. [Suspect]
     Active Substance: CAPECITABINE
     Indication: ADENOCARCINOMA GASTRIC
     Dosage: 2000 MG, UNK
     Route: 042
     Dates: start: 20140616, end: 20140616

REACTIONS (3)
  - Malaise [Recovered/Resolved]
  - Migraine [Recovered/Resolved]
  - Fatigue [Recovered/Resolved]

NARRATIVE: CASE EVENT DATE: 20140716
